FAERS Safety Report 9670323 (Version 2)
Quarter: 2013Q4

REPORT INFORMATION
  Report Type: Spontaneous
  Country: PL (occurrence: None)
  Receive Date: 20131028
  Receipt Date: 20131119
  Transmission Date: 20140711
  Serious: Yes (Life-Threatening)
  Sender: FDA-Public Use
  Company Number: PL-IGSA-IG1531

PATIENT
  Age: 73 Year
  Sex: Male

DRUGS (23)
  1. FLEBOGAMMA [Suspect]
     Indication: HYDROCEPHALUS
     Dosage: SOL_INF
     Route: 042
     Dates: start: 20130902, end: 20130902
  2. FLEBOGAMMA [Suspect]
     Indication: HYPOGAMMAGLOBULINAEMIA
     Dosage: SOL_INF
     Route: 042
     Dates: start: 20130902, end: 20130902
  3. FUROSEMIDE (FUROSEMIDE) [Concomitant]
  4. HEVIRAN (ACICYCLOVIR SODIUM) [Concomitant]
  5. MANITOL (MANITOL) [Concomitant]
  6. EGIRAMLON [Concomitant]
  7. CAPTOPRIL (CAPTOPRIL) (CAPTOPRIL) [Concomitant]
  8. MULTIELECTROLYTE FLUID [Concomitant]
  9. FINASTERIDE (FINASTERIDE) [Concomitant]
  10. PYRALGIN [Concomitant]
  11. CLEXANE (ENOXAPARIN SODIUM) [Concomitant]
  12. TARTIAXON [Concomitant]
  13. VANCOMYCIN (VANCOMYCIN) [Concomitant]
  14. TRITACE (RAMIPRIL) [Concomitant]
  15. AMLOZEK (AMLODIPINE BESILATE) [Concomitant]
  16. FLUCONAZOL (FLUCONAZOLE) [Concomitant]
  17. KALIPOZ PROLONGATUM [Concomitant]
  18. LACTULOSE (LACTULOSE) [Concomitant]
  19. BISEPTOL (BACTRIM) [Concomitant]
  20. BISOCARD (BISOPROLOL FUMARATE) [Concomitant]
  21. DEXAVEN (DEXAMETHASONE SODIUM PHOSPHATE) [Concomitant]
  22. CIPROFLOXACIN (CIPROFLOXACIN) [Concomitant]
  23. GLYCERIN (GLYCEROL) [Concomitant]

REACTIONS (6)
  - Tachycardia [None]
  - Chills [None]
  - Blood pressure increased [None]
  - Blood pressure decreased [None]
  - Pyrexia [None]
  - Anuria [None]
